FAERS Safety Report 5341993-8 (Version None)
Quarter: 2007Q2

REPORT INFORMATION
  Report Type: 
  Country: None (occurrence: None)
  Receive Date: 20070530
  Receipt Date: 20070530
  Transmission Date: 20071010
  Serious: Yes (Hospitalization)
  Sender: FDA-Public Use
  Company Number: None

PATIENT
  Age: 54 Year
  Sex: Male

DRUGS (3)
  1. TRAMADOL HCL [Suspect]
     Indication: PAIN
     Dosage: 100MG QID PO
     Route: 048
     Dates: start: 20060211
  2. CYCLOBENZAPRINE HCL [Suspect]
     Indication: DEPRESSION
     Dosage: 10MG TID PO
     Route: 048
  3. CYCLOBENZAPRINE HCL [Suspect]
     Indication: POST-TRAUMATIC STRESS DISORDER
     Dosage: 10MG TID PO
     Route: 048

REACTIONS (3)
  - HYPOTENSION [None]
  - SEDATION [None]
  - SUICIDE ATTEMPT [None]
